FAERS Safety Report 21131992 (Version 1)
Quarter: 2022Q3

REPORT INFORMATION
  Report Type: Spontaneous
  Country: US (occurrence: US)
  Receive Date: 20220726
  Receipt Date: 20220726
  Transmission Date: 20221027
  Serious: No
  Sender: FDA-Public Use
  Company Number: US-Osmotica_Pharmaceutical_US_LLC-POI0573202200005

PATIENT
  Sex: Female

DRUGS (2)
  1. DIVIGEL [Suspect]
     Active Substance: ESTRADIOL
     Indication: Product used for unknown indication
     Route: 062
     Dates: start: 2021
  2. DIVIGEL [Suspect]
     Active Substance: ESTRADIOL
     Dosage: UNKNOWN
     Route: 062
     Dates: end: 2021

REACTIONS (5)
  - Pigmentation disorder [Unknown]
  - Vasodilatation [Unknown]
  - Solar lentigo [Unknown]
  - Intentional product use issue [Unknown]
  - Off label use [Unknown]

NARRATIVE: CASE EVENT DATE: 20210101
